FAERS Safety Report 6101950-0 (Version None)
Quarter: 2009Q1

REPORT INFORMATION
  Report Type: 
  Country: None (occurrence: None)
  Receive Date: 20090227
  Receipt Date: 20081022
  Transmission Date: 20090719
  Serious: Yes (Other)
  Sender: FDA-Public Use
  Company Number: 268719

PATIENT
  Age: 18 Year
  Sex: Male
  Weight: 50.9 kg

DRUGS (3)
  1. NUTROPIN AQ [Suspect]
     Indication: GROWTH RETARDATION
     Dosage: 2.1 MG, 7/WEEK
     Dates: start: 20060629, end: 20080827
  2. ASPIRIN [Concomitant]
  3. LISINOPRIL [Concomitant]

REACTIONS (1)
  - INTRACRANIAL PRESSURE INCREASED [None]
